FAERS Safety Report 6376386-8 (Version None)
Quarter: 2009Q3

REPORT INFORMATION
  Report Type: 
  Country: None (occurrence: None)
  Receive Date: 20090918
  Receipt Date: 20090907
  Transmission Date: 20100115
  Serious: Yes (Life-Threatening, Hospitalization)
  Sender: FDA-Public Use
  Company Number: 2009AL005908

PATIENT
  Age: 40 Year
  Sex: Female

DRUGS (4)
  1. EPIRUBICIN HCL [Suspect]
  2. CYCLOPHOSPHAMIDE [Concomitant]
  3. PACLITAXEL [Concomitant]
  4. GEMCITABINE [Concomitant]

REACTIONS (2)
  - PULMONARY EMBOLISM [None]
  - PYREXIA [None]
